FAERS Safety Report 5800513-1 (Version None)
Quarter: 2008Q3

REPORT INFORMATION
  Report Type: 
  Country: None (occurrence: None)
  Receive Date: 20080703
  Receipt Date: 20080702
  Transmission Date: 20090109
  Serious: Yes (Other)
  Sender: FDA-Public Use
  Company Number: B0527546A

PATIENT
  Age: 56 Year
  Sex: Male

DRUGS (1)
  1. AVANDAMET [Suspect]
     Dates: start: 20070716, end: 20080617

REACTIONS (3)
  - APHASIA [None]
  - CEREBRAL INFARCTION [None]
  - CEREBROVASCULAR ACCIDENT [None]
